FAERS Safety Report 12710207 (Version 2)
Quarter: 2016Q4

REPORT INFORMATION
  Report Type: Spontaneous
  Country: US (occurrence: US)
  Receive Date: 20160902
  Receipt Date: 20161109
  Transmission Date: 20170207
  Serious: No
  Sender: FDA-Public Use
  Company Number: US-GLAXOSMITHKLINE-US2016GSK127068

PATIENT
  Sex: Female

DRUGS (2)
  1. SEASONAL INFLUENZA VACCINE SOLUTION FOR INJECTION [Suspect]
     Active Substance: INFLUENZA VIRUS VACCINE
     Indication: PROPHYLAXIS
  2. BUPROPION TABLET [Suspect]
     Active Substance: BUPROPION

REACTIONS (1)
  - Drug hypersensitivity [Unknown]
